FAERS Safety Report 20152339 (Version 1)
Quarter: 2021Q4

REPORT INFORMATION
  Report Type: Spontaneous
  Country: US (occurrence: US)
  Receive Date: 20211206
  Receipt Date: 20211206
  Transmission Date: 20220303
  Serious: Yes (Other)
  Sender: FDA-Public Use
  Company Number: US-PFIZER INC-202101655048

PATIENT
  Age: 58 Year
  Sex: Female

DRUGS (1)
  1. XELJANZ [Suspect]
     Active Substance: TOFACITINIB CITRATE
     Dosage: UNK

REACTIONS (6)
  - Blindness [Unknown]
  - Cataract [Unknown]
  - Macular degeneration [Unknown]
  - Stargardt^s disease [Unknown]
  - Cone dystrophy [Unknown]
  - Visual acuity tests abnormal [Unknown]
